FAERS Safety Report 7598575-7 (Version None)
Quarter: 2011Q3

REPORT INFORMATION
  Report Type: 
  Country: None (occurrence: None)
  Receive Date: 20110708
  Receipt Date: 20110629
  Transmission Date: 20111222
  Serious: Yes (Hospitalization)
  Sender: FDA-Public Use
  Company Number: US-ASTRAZENECA-2011SE39257

PATIENT
  Age: 77 Year
  Sex: Female

DRUGS (3)
  1. TOPROL-XL [Suspect]
     Route: 048
  2. INTRAVENOUS ANTIBIOTICS [Concomitant]
     Route: 042
  3. NEXIUM [Suspect]
     Route: 048

REACTIONS (3)
  - STAPHYLOCOCCAL INFECTION [None]
  - ANGIOGRAM [None]
  - BRONCHITIS [None]
